FAERS Safety Report 15899597 (Version 11)
Quarter: 2020Q2

REPORT INFORMATION
  Report Type: Spontaneous
  Country: US (occurrence: US)
  Receive Date: 20190201
  Receipt Date: 20200608
  Transmission Date: 20200713
  Serious: Yes (Other)
  Sender: FDA-Public Use
  Company Number: US-PFIZER INC-2018424472

PATIENT
  Age: 46 Year
  Sex: Male
  Weight: 86 kg

DRUGS (6)
  1. LYRICA [Suspect]
     Active Substance: PREGABALIN
     Indication: FIBROMYALGIA
     Dosage: 300 MG, 2X/DAY
     Route: 048
  2. VALIUM [Concomitant]
     Active Substance: DIAZEPAM
     Dosage: UNK
  3. LYRICA [Suspect]
     Active Substance: PREGABALIN
     Dosage: 300 MG, 2X/DAY
     Route: 048
     Dates: end: 201908
  4. LYRICA [Suspect]
     Active Substance: PREGABALIN
     Indication: NEUROPATHY PERIPHERAL
     Dosage: UNK, 1X/DAY (TAKING ONCE A DAY AND PRESCRIBED TWO A DAY)
     Route: 048
  5. TRAMADOL. [Concomitant]
     Active Substance: TRAMADOL
     Indication: PAIN
     Dosage: 200 MG, DAILY (50 MG, 2 IN THE MORNING AND 2 IN THE EVENING, BY MOUTH)
     Route: 048
  6. LYRICA [Suspect]
     Active Substance: PREGABALIN
     Indication: NECK PAIN
     Dosage: 600 MG, DAILY
     Route: 048

REACTIONS (12)
  - Headache [Recovered/Resolved]
  - Nervousness [Recovered/Resolved]
  - Quality of life decreased [Unknown]
  - Withdrawal syndrome [Recovered/Resolved]
  - Memory impairment [Unknown]
  - Mental disorder [Unknown]
  - Visual impairment [Unknown]
  - Intentional product use issue [Unknown]
  - Suicidal ideation [Unknown]
  - Drug ineffective [Unknown]
  - Product dose omission [Unknown]
  - Hypersomnia [Unknown]
